FAERS Safety Report 7525985-6 (Version None)
Quarter: 2011Q2

REPORT INFORMATION
  Report Type: 
  Country: None (occurrence: None)
  Receive Date: 20110606
  Receipt Date: 20080407
  Transmission Date: 20111010
  Serious: Yes (Death, Hospitalization, Other)
  Sender: FDA-Public Use
  Company Number: US-BAYER-200826541NA

PATIENT
  Age: 43 Year
  Sex: Female
  Weight: 78 kg

DRUGS (8)
  1. HEPARIN [Concomitant]
     Dosage: UNK
     Route: 042
     Dates: start: 20051219, end: 20051219
  2. CARDENE [Concomitant]
     Dosage: UNK
     Route: 042
     Dates: start: 20051219
  3. PROTAMINE SULFATE [Concomitant]
     Dosage: UNK
     Route: 042
     Dates: start: 20051219, end: 20051219
  4. TRASYLOL [Suspect]
     Indication: CORONARY ARTERY BYPASS
     Dosage: FULL DOSE
     Route: 042
     Dates: start: 20051219, end: 20051219
  5. ACETYLSALICYLIC ACID SRT [Concomitant]
     Dosage: 81 MG DAY
     Route: 048
  6. FENTANYL [Concomitant]
     Dosage: UNK
     Dates: start: 20051219, end: 20051219
  7. METOPROLOL TARTRATE [Concomitant]
  8. AMOXICILLIN [Concomitant]

REACTIONS (10)
  - INJURY [None]
  - ADVERSE EVENT [None]
  - DEPRESSION [None]
  - RENAL FAILURE [None]
  - UNEVALUABLE EVENT [None]
  - FEAR [None]
  - ANXIETY [None]
  - PAIN [None]
  - DEATH [None]
  - ANHEDONIA [None]
